FAERS Safety Report 23629460 (Version 1)
Quarter: 2024Q1

REPORT INFORMATION
  Report Type: Spontaneous
  Country: KR (occurrence: KR)
  Receive Date: 20240313
  Receipt Date: 20240313
  Transmission Date: 20240410
  Serious: Yes (Other)
  Sender: FDA-Public Use
  Company Number: KR-ASTELLAS-2024US007354

PATIENT
  Sex: Male
  Weight: 70 kg

DRUGS (2)
  1. TAMSULOSIN HYDROCHLORIDE [Suspect]
     Active Substance: TAMSULOSIN HYDROCHLORIDE
     Indication: Epistaxis
     Dosage: 1 DF, QD
     Route: 065
     Dates: start: 20220815, end: 20220824
  2. MIRABEGRON [Suspect]
     Active Substance: MIRABEGRON
     Indication: Epistaxis
     Dosage: 1 DF, QD
     Route: 065
     Dates: start: 20220815

REACTIONS (2)
  - Loss of consciousness [Recovered/Resolved]
  - Product use in unapproved indication [Unknown]

NARRATIVE: CASE EVENT DATE: 20220815
